FAERS Safety Report 6243276-0 (Version None)
Quarter: 2009Q2

REPORT INFORMATION
  Report Type: 
  Country: None (occurrence: None)
  Receive Date: 20090624
  Receipt Date: 20090611
  Transmission Date: 20091009
  Serious: Yes (Other)
  Sender: FDA-Public Use
  Company Number: PHHY2009US22896

PATIENT

DRUGS (1)
  1. LETROZOLE [Suspect]
     Indication: BREAST CANCER
     Dosage: 2.5 MG DAILY
     Dates: start: 20060301

REACTIONS (6)
  - ARTHRALGIA [None]
  - JOINT STIFFNESS [None]
  - LYMPHADENECTOMY [None]
  - MASTECTOMY [None]
  - RHEUMATOID NODULE [None]
  - SUBCUTANEOUS NODULE [None]
